FAERS Safety Report 4846022-8 (Version None)
Quarter: 2005Q4

REPORT INFORMATION
  Report Type: 
  Country: None (occurrence: None)
  Receive Date: 20051130
  Receipt Date: 20051118
  Transmission Date: 20060501
  Serious: Yes (Other)
  Sender: FDA-Public Use
  Company Number: PHEH2005US12737

PATIENT
  Age: 58 Year
  Sex: Female

DRUGS (1)
  1. VISUDYNE [Suspect]
     Dates: start: 20051116, end: 20051116

REACTIONS (3)
  - HEADACHE [None]
  - HEMIANOPIA [None]
  - VISUAL ACUITY REDUCED [None]
